FAERS Safety Report 9508077 (Version 1)
Quarter: 2013Q1

REPORT INFORMATION
  Report Type: Spontaneous
  Country: US (occurrence: None)
  Receive Date: 20130305
  Receipt Date: 20130305
  Transmission Date: 20140127
  Serious: Yes (Other)
  Sender: FDA-Public Use
  Company Number: 163-21880-12032881

PATIENT
  Age: 55 Year
  Sex: Female

DRUGS (3)
  1. REVLIMID (LENALIDOMIDE) (25 MILLIGRAM, CAPSULES) [Suspect]
     Dosage: 1 IN 1 D
     Route: 048
     Dates: start: 201004
  2. ASPIRIN (ACETYLSALICYLIC ACID) [Concomitant]
  3. VACCINES (VACCINES) [Concomitant]

REACTIONS (2)
  - Fatigue [None]
  - Localised oedema [None]
